FAERS Safety Report 7799145-8 (Version None)
Quarter: 2011Q4

REPORT INFORMATION
  Report Type: 
  Country: None (occurrence: None)
  Receive Date: 20111006
  Receipt Date: 20111004
  Transmission Date: 20120403
  Serious: Yes (Hospitalization)
  Sender: FDA-Public Use
  Company Number: AU-PFIZER INC-2011227299

PATIENT
  Age: 61 Year
  Sex: Male
  Weight: 78.2 kg

DRUGS (4)
  1. VARENICLINE TARTRATE [Suspect]
     Indication: SMOKING CESSATION THERAPY
     Dosage: 2 MG, DAILY
     Route: 048
     Dates: start: 20110214, end: 20110327
  2. EFFEXOR XR [Concomitant]
     Indication: AFFECTIVE DISORDER
     Dosage: UNK
  3. VALPROATE SODIUM [Concomitant]
     Indication: AFFECTIVE DISORDER
     Dosage: UNK
  4. GEMFIBROZIL [Concomitant]
     Indication: METABOLIC DISORDER
     Dosage: UNK

REACTIONS (7)
  - AGGRESSION [None]
  - INAPPROPRIATE AFFECT [None]
  - DELUSION [None]
  - MANIA [None]
  - PRESSURE OF SPEECH [None]
  - AGITATION [None]
  - NERVOUSNESS [None]
